FAERS Safety Report 12661300 (Version 2)
Quarter: 2016Q3

REPORT INFORMATION
  Report Type: Spontaneous
  Country: US (occurrence: US)
  Receive Date: 20160817
  Receipt Date: 20160901
  Transmission Date: 20161109
  Serious: No
  Sender: FDA-Public Use
  Company Number: US-RELYPSA-RLY2016000873

PATIENT
  Sex: Male

DRUGS (12)
  1. SENNA LAXATIVE [Concomitant]
     Active Substance: SENNOSIDES
  2. AMLODIPINE BESYLATE. [Concomitant]
     Active Substance: AMLODIPINE BESYLATE
  3. LITHOBID [Concomitant]
     Active Substance: LITHIUM CARBONATE
  4. MIRALAX [Concomitant]
     Active Substance: POLYETHYLENE GLYCOL 3350
  5. OLANZAPINE. [Concomitant]
     Active Substance: OLANZAPINE
  6. CARBAMAZEPINE. [Concomitant]
     Active Substance: CARBAMAZEPINE
  7. CATAPRES-TTS [Concomitant]
     Active Substance: CLONIDINE
  8. MELATONIN [Concomitant]
     Active Substance: MELATONIN
  9. NEURONTIN [Concomitant]
     Active Substance: GABAPENTIN
  10. VELTASSA [Suspect]
     Active Substance: PATIROMER
     Indication: HYPERKALAEMIA
     Dosage: 8.4 G, QD
     Route: 048
     Dates: start: 20160517
  11. RENVELA [Concomitant]
     Active Substance: SEVELAMER CARBONATE
  12. TEGRETOL [Concomitant]
     Active Substance: CARBAMAZEPINE

REACTIONS (1)
  - Neuropathy peripheral [Not Recovered/Not Resolved]
